FAERS Safety Report 9730492 (Version 1)
Quarter: 2013Q4

REPORT INFORMATION
  Report Type: Spontaneous
  Country: AU (occurrence: AU)
  Receive Date: 20131202
  Receipt Date: 20131202
  Transmission Date: 20140711
  Serious: Yes (Other)
  Sender: FDA-Public Use
  Company Number: PHHY2013AU139465

PATIENT
  Sex: Male

DRUGS (5)
  1. TEGRETOL CR [Suspect]
     Dosage: UNK UKN, UNK
  2. EPILIM [Suspect]
     Dosage: UNK UKN, UNK
  3. ATACAND PLUS [Suspect]
     Dosage: 1 DF (16/12.5), UNK
  4. ASPIRIN [Suspect]
     Dosage: UNK UKN, UNK
  5. SIMVASTATIN [Concomitant]
     Dosage: UNK UKN, UNK

REACTIONS (3)
  - Haemorrhage intracranial [Unknown]
  - Hyponatraemia [Unknown]
  - Dizziness [Unknown]
